FAERS Safety Report 9467117 (Version 1)
Quarter: 2013Q3

REPORT INFORMATION
  Report Type: Spontaneous
  Country: US (occurrence: US)
  Receive Date: 20130820
  Receipt Date: 20130820
  Transmission Date: 20140515
  Serious: No
  Sender: FDA-Public Use
  Company Number: US-CUBIST PHARMACEUTICAL, INC.-2013CBST000333

PATIENT
  Age: 57 Year
  Sex: Male
  Weight: 77.1 kg

DRUGS (4)
  1. ENTEREG [Suspect]
     Indication: INTESTINAL RESECTION
     Dosage: 12 MG, BID
     Route: 048
     Dates: start: 20130411, end: 20130412
  2. DILAUDID [Concomitant]
     Indication: PAIN
     Dosage: UNK UNK, UNK
     Route: 042
     Dates: start: 20130411
  3. HEPARIN [Concomitant]
     Indication: THROMBOSIS PROPHYLAXIS
     Dosage: UNK UNK, UNK
     Route: 058
     Dates: start: 20130411
  4. LEVOFLOXACIN [Concomitant]
     Indication: PROPHYLAXIS
     Dosage: 500 MG, UNK
     Route: 042
     Dates: start: 20130411, end: 20130411

REACTIONS (1)
  - Rash pruritic [Not Recovered/Not Resolved]
